FAERS Safety Report 14924798 (Version 1)
Quarter: 2018Q2

REPORT INFORMATION
  Report Type: Spontaneous
  Country: US (occurrence: US)
  Receive Date: 20180522
  Receipt Date: 20180522
  Transmission Date: 20180711
  Serious: No
  Sender: FDA-Public Use
  Company Number: US-TARO-2017TAR00423

PATIENT
  Age: 55 Year
  Sex: Female
  Weight: 79.37 kg

DRUGS (2)
  1. CLOTRIMAZOLE VAGINAL CREAM USP 2% 3 DAY [Suspect]
     Active Substance: CLOTRIMAZOLE
     Dosage: UNK, 1X/DAY
     Route: 067
     Dates: start: 20170518, end: 20170519
  2. SERTRALINE [Concomitant]
     Active Substance: SERTRALINE HYDROCHLORIDE
     Dosage: 25 MG, UNK

REACTIONS (2)
  - Application site pain [Recovering/Resolving]
  - Application site discomfort [Recovering/Resolving]

NARRATIVE: CASE EVENT DATE: 20170518
